FAERS Safety Report 9897698 (Version 1)
Quarter: 2014Q1

REPORT INFORMATION
  Report Type: Spontaneous
  Country: US (occurrence: US)
  Receive Date: 20140214
  Receipt Date: 20140214
  Transmission Date: 20141002
  Serious: Yes (Death, Other)
  Sender: FDA-Public Use
  Company Number: US-MALLINCKRODT-T201401142

PATIENT
  Age: 20 Year
  Sex: Female

DRUGS (2)
  1. GABLOFEN [Suspect]
     Indication: MUSCLE SPASTICITY
     Dosage: 500.5 MCG/DAY
     Route: 037
     Dates: start: 20140124
  2. NORMAL SALINE [Concomitant]
     Dosage: UNK
     Route: 037
     Dates: start: 20120921, end: 20140124

REACTIONS (4)
  - Respiratory arrest [Fatal]
  - Cardiac arrest [Fatal]
  - Pneumonia [Fatal]
  - Spinal disorder [Unknown]
